FAERS Safety Report 9862793 (Version 2)
Quarter: 2014Q1

REPORT INFORMATION
  Report Type: Spontaneous
  Country: US (occurrence: US)
  Receive Date: 20140203
  Receipt Date: 20140203
  Transmission Date: 20141002
  Serious: Yes (Hospitalization)
  Sender: FDA-Public Use
  Company Number: US-BAXTER-2014BAX003533

PATIENT
  Sex: Female

DRUGS (3)
  1. DIANEAL LOW CALCIUM [Suspect]
     Indication: PERITONEAL DIALYSIS
     Route: 033
     Dates: start: 201306
  2. DIANEAL LOW CALCIUM (ULTRABAG) [Suspect]
     Indication: PERITONEAL DIALYSIS
     Route: 033
     Dates: start: 201306
  3. DIANEAL LOW CALCIUM (ULTRABAG) [Suspect]
     Indication: PERITONEAL DIALYSIS
     Route: 033
     Dates: start: 201401

REACTIONS (8)
  - Blood glucose increased [Recovered/Resolved]
  - Sepsis [Recovered/Resolved]
  - Pericardial effusion [Recovering/Resolving]
  - Fluid overload [Recovered/Resolved]
  - Regurgitation [Recovered/Resolved]
  - Stress [Recovering/Resolving]
  - Anxiety [Recovered/Resolved]
  - Malaise [Recovered/Resolved]
